FAERS Safety Report 25318757 (Version 1)
Quarter: 2025Q2

REPORT INFORMATION
  Report Type: Spontaneous
  Country: US (occurrence: US)
  Receive Date: 20250515
  Receipt Date: 20250515
  Transmission Date: 20250717
  Serious: Yes (Other)
  Sender: MALLINCKRODT
  Company Number: US-MALLINCKRODT-MNK202502816

PATIENT
  Age: 52 Year
  Sex: Female

DRUGS (1)
  1. UVADEX [Suspect]
     Active Substance: METHOXSALEN
     Indication: Bronchiolitis obliterans syndrome
     Route: 050

REACTIONS (3)
  - Lung adenocarcinoma [Unknown]
  - Pancreatic failure [Unknown]
  - Product use in unapproved indication [Unknown]
